FAERS Safety Report 9789777 (Version 2)
Quarter: 2014Q1

REPORT INFORMATION
  Report Type: Spontaneous
  Country: JP (occurrence: None)
  Receive Date: 20131227
  Receipt Date: 20140122
  Transmission Date: 20141002
  Serious: Yes (Hospitalization)
  Sender: FDA-Public Use
  Company Number: DSJ-2013-28210

PATIENT
  Age: 56 Year
  Sex: Female

DRUGS (2)
  1. OLMETEC [Suspect]
     Indication: PRODUCT USED FOR UNKNOWN INDICATION
  2. LITHIUM CARBONATE [Suspect]
     Indication: BIPOLAR I DISORDER
     Dosage: TWENTY YEARS AGO

REACTIONS (4)
  - Drug interaction [None]
  - Toxicity to various agents [None]
  - Renal impairment [None]
  - Bradycardia [None]
